FAERS Safety Report 13314199 (Version 1)
Quarter: 2017Q1

REPORT INFORMATION
  Report Type: Spontaneous
  Country: US (occurrence: US)
  Receive Date: 20170309
  Receipt Date: 20170309
  Transmission Date: 20170428
  Serious: No
  Sender: FDA-Public Use
  Company Number: US-TURING PHARMACEUTICALS-2016TNG00042

PATIENT
  Sex: Male

DRUGS (6)
  1. ASPIRIN. [Concomitant]
     Active Substance: ASPIRIN
  2. NIACIN. [Concomitant]
     Active Substance: NIACIN
  3. CLINDAMYCIN. [Concomitant]
     Active Substance: CLINDAMYCIN
  4. DARAPRIM [Suspect]
     Active Substance: PYRIMETHAMINE
     Indication: INFECTION
     Dosage: 1 TABLETS, 1X/DAY
     Route: 048
     Dates: start: 20160721
  5. IRON [Concomitant]
     Active Substance: IRON
  6. TAMSULOSIN HYDROCHLORIDE. [Concomitant]
     Active Substance: TAMSULOSIN HYDROCHLORIDE

REACTIONS (2)
  - Diarrhoea [Recovered/Resolved]
  - Alopecia [Not Recovered/Not Resolved]

NARRATIVE: CASE EVENT DATE: 2016
